FAERS Safety Report 9156486 (Version 2)
Quarter: 2013Q1

REPORT INFORMATION
  Report Type: Spontaneous
  Country: CA (occurrence: None)
  Receive Date: 20130206
  Receipt Date: 20130318
  Transmission Date: 20140127
  Serious: Yes (Other)
  Sender: FDA-Public Use
  Company Number: 2013-01189

PATIENT
  Age: 66 Year
  Sex: Female
  Weight: 65 kg

DRUGS (3)
  1. GABAPENTIN [Suspect]
     Indication: BACK PAIN
     Dates: start: 20110823, end: 201202
  2. GABAPENTIN [Suspect]
     Indication: MUSCULOSKELETAL PAIN
     Dates: start: 20110823, end: 201202
  3. HYDROMORPHONE (HYDROMORPHONE) [Concomitant]

REACTIONS (5)
  - Memory impairment [None]
  - Local swelling [None]
  - Dyskinesia [None]
  - Knee operation [None]
  - Drug effect decreased [None]
